FAERS Safety Report 9841369 (Version 2)
Quarter: 2014Q1

REPORT INFORMATION
  Report Type: Spontaneous
  Country: JP (occurrence: JP)
  Receive Date: 20140124
  Receipt Date: 20140220
  Transmission Date: 20141002
  Serious: Yes (Other)
  Sender: FDA-Public Use
  Company Number: JP-SA-2014SA006928

PATIENT
  Age: 66 Year
  Sex: Female

DRUGS (1)
  1. PLAVIX [Suspect]
     Indication: PRODUCT USED FOR UNKNOWN INDICATION
     Route: 048
     Dates: start: 20130805, end: 20140118

REACTIONS (5)
  - Laryngeal oedema [Unknown]
  - Stomatitis [Recovering/Resolving]
  - Eczema [Recovering/Resolving]
  - Pain [Unknown]
  - Erythema multiforme [Unknown]
